FAERS Safety Report 7678613-3 (Version None)
Quarter: 2011Q3

REPORT INFORMATION
  Report Type: 
  Country: None (occurrence: None)
  Receive Date: 20110811
  Receipt Date: 20060324
  Transmission Date: 20111222
  Serious: Yes (Other)
  Sender: FDA-Public Use
  Company Number: IT-BAXTER-2011BH025633

PATIENT
  Age: 26 Year
  Sex: Female

DRUGS (2)
  1. PREDNISONE [Suspect]
     Indication: LUPUS NEPHRITIS
     Route: 065
  2. CYCLOPHOSPHAMIDE [Suspect]
     Indication: LUPUS NEPHRITIS
     Route: 065

REACTIONS (3)
  - ABORTION INDUCED [None]
  - TERATOGENICITY [None]
  - MATERNAL EXPOSURE DURING PREGNANCY [None]
